FAERS Safety Report 9001093 (Version 1)
Quarter: 2013Q1

REPORT INFORMATION
  Report Type: Spontaneous
  Country: CO (occurrence: CO)
  Receive Date: 20130107
  Receipt Date: 20130107
  Transmission Date: 20140127
  Serious: Yes (Other)
  Sender: FDA-Public Use
  Company Number: CO-UCBSA-074283

PATIENT
  Age: 43 Year
  Sex: Female

DRUGS (4)
  1. CIMZIA [Suspect]
     Indication: RHEUMATOID ARTHRITIS
     Route: 058
     Dates: start: 20120628, end: 20120917
  2. METHOTREXATE [Concomitant]
     Dosage: DAILY DOSE: 15 MG/DAY-2 YEARS
  3. PREDNISOLONE [Concomitant]
     Dosage: DAILY DOSE: 5 MG -2 YEARS
  4. FOLIC ACID [Concomitant]
     Dosage: 1 MG -3 YEARS

REACTIONS (1)
  - Lymphoma [Unknown]
